FAERS Safety Report 14220964 (Version 4)
Quarter: 2018Q1

REPORT INFORMATION
  Report Type: Spontaneous
  Country: US (occurrence: US)
  Receive Date: 20171124
  Receipt Date: 20180109
  Transmission Date: 20180508
  Serious: Yes (Other)
  Sender: FDA-Public Use
  Company Number: US-PFIZER INC-2017496722

PATIENT
  Age: 20 Year
  Sex: Female

DRUGS (8)
  1. BETAMETHASONE ACETATE/BETAMETHASONE SODIUM PHOSPHATE [Suspect]
     Active Substance: BETAMETHASONE ACETATE\BETAMETHASONE SODIUM PHOSPHATE
     Indication: PLANTAR FASCIITIS
     Dosage: 0.5 ML, UNK
     Dates: start: 20170928, end: 20170928
  2. BETAMETHASONE ACETATE/BETAMETHASONE SODIUM PHOSPHATE [Suspect]
     Active Substance: BETAMETHASONE ACETATE\BETAMETHASONE SODIUM PHOSPHATE
     Dosage: 0.5 ML, UNK
     Dates: start: 20171019, end: 20171019
  3. CORTISONE ACETATE. [Suspect]
     Active Substance: CORTISONE ACETATE
  4. FLUOXETINE [Concomitant]
     Active Substance: FLUOXETINE HYDROCHLORIDE
     Indication: DEPRESSION
     Dosage: 20 MG, UNK
     Route: 048
  5. MEPIVACAINE HCL [Suspect]
     Active Substance: MEPIVACAINE\MEPIVACAINE HYDROCHLORIDE
     Dosage: UNK
  6. LIDOCAINE HCL [Suspect]
     Active Substance: LIDOCAINE HYDROCHLORIDE
     Indication: PLANTAR FASCIITIS
     Dosage: 1 ML, UNK
     Dates: start: 20170928
  7. LIDOCAINE HCL [Suspect]
     Active Substance: LIDOCAINE HYDROCHLORIDE
     Dosage: 1 ML, UNK
     Route: 014
     Dates: start: 20171019
  8. BETAMETHASONE ACETATE [Suspect]
     Active Substance: BETAMETHASONE ACETATE

REACTIONS (4)
  - Abscess limb [Recovering/Resolving]
  - Mycobacterium chelonae infection [Unknown]
  - Product use issue [Unknown]
  - Off label use [Unknown]

NARRATIVE: CASE EVENT DATE: 20171019
